FAERS Safety Report 7418531-9 (Version None)
Quarter: 2011Q2

REPORT INFORMATION
  Report Type: 
  Country: None (occurrence: None)
  Receive Date: 20110407
  Receipt Date: 20110325
  Transmission Date: 20111010
  Serious: Yes (Other)
  Sender: FDA-Public Use
  Company Number: 030060

PATIENT
  Sex: Male

DRUGS (16)
  1. ACETYLCYSTEINE [Concomitant]
  2. TAVOR /00273201/ [Concomitant]
  3. KEPPRA [Suspect]
     Dosage: SEE IMAGE
     Route: 042
     Dates: start: 20110317, end: 20110301
  4. KEPPRA [Suspect]
     Dosage: SEE IMAGE
     Route: 042
     Dates: start: 20110320, end: 20110301
  5. KEPPRA [Suspect]
     Dosage: SEE IMAGE
     Route: 042
     Dates: start: 20110318, end: 20110301
  6. CALCIUM [Concomitant]
  7. PANTOZOL/01263202/ [Concomitant]
  8. NOVALGIN /00039501/ [Concomitant]
  9. MAGNESIUM [Concomitant]
  10. ZINACEF /00454601/ [Concomitant]
  11. ULCOGANT /00434701/ [Concomitant]
  12. UNIZINK [Concomitant]
  13. COROTROP [Concomitant]
  14. PERFALGAN [Concomitant]
  15. ILOMEDIN /00944801/ [Concomitant]
  16. LASIX [Suspect]

REACTIONS (2)
  - BLOOD AMYLASE INCREASED [None]
  - LIPASE INCREASED [None]
